FAERS Safety Report 20702778 (Version 3)
Quarter: 2022Q4

REPORT INFORMATION
  Report Type: Report from Study
  Country: US (occurrence: US)
  Receive Date: 20220412
  Receipt Date: 20221108
  Transmission Date: 20230113
  Serious: Yes (Other)
  Sender: FDA-Public Use
  Company Number: US-ABBVIE-22K-163-4345941-00

PATIENT
  Sex: Male

DRUGS (11)
  1. HUMIRA [Suspect]
     Active Substance: ADALIMUMAB
     Indication: Rheumatoid arthritis
     Dosage: CITRATE FREE
     Route: 058
     Dates: end: 2018
  2. HUMIRA [Suspect]
     Active Substance: ADALIMUMAB
     Dosage: CITRATE FREE
     Route: 058
  3. HUMIRA [Suspect]
     Active Substance: ADALIMUMAB
     Dosage: CITRATE FREE
     Route: 058
     Dates: start: 202201, end: 2022
  4. HUMIRA [Suspect]
     Active Substance: ADALIMUMAB
     Dosage: CITRATE FREE
     Route: 058
     Dates: start: 202203
  5. METHOTREXATE [Suspect]
     Active Substance: METHOTREXATE
     Indication: Polymyalgia rheumatica
     Route: 065
  6. PFIZER-BIONTECH COVID-19 VACCINE [Concomitant]
     Active Substance: TOZINAMERAN
     Indication: COVID-19 immunisation
     Dosage: TIME INTERVAL: 1 TOTAL: 1ST DOSE
     Route: 030
     Dates: start: 20210331, end: 20210331
  7. PFIZER-BIONTECH COVID-19 VACCINE [Concomitant]
     Active Substance: TOZINAMERAN
     Indication: COVID-19 immunisation
     Dosage: TIME INTERVAL: 1 TOTAL: 2ND DOSE
     Route: 030
     Dates: start: 20210503, end: 20210503
  8. PFIZER-BIONTECH COVID-19 VACCINE [Concomitant]
     Active Substance: TOZINAMERAN
     Indication: COVID-19 immunisation
     Dosage: TIME INTERVAL: 1 TOTAL: BOOSTER
     Route: 030
     Dates: start: 20220116, end: 20220116
  9. PREDNISONE [Concomitant]
     Active Substance: PREDNISONE
     Indication: Pain
     Route: 065
  10. XIIDRA [Concomitant]
     Active Substance: LIFITEGRAST
     Indication: Dry eye
     Route: 065
  11. ALLEGRA [Concomitant]
     Active Substance: FEXOFENADINE HYDROCHLORIDE
     Indication: Hypersensitivity
     Route: 065

REACTIONS (9)
  - Osteoarthritis [Unknown]
  - Limb asymmetry [Not Recovered/Not Resolved]
  - Memory impairment [Unknown]
  - Procedural pain [Not Recovered/Not Resolved]
  - Joint effusion [Unknown]
  - Drug ineffective [Unknown]
  - Pain [Unknown]
  - Cataract [Unknown]
  - Complication associated with device [Unknown]

NARRATIVE: CASE EVENT DATE: 20180101
